FAERS Safety Report 20314696 (Version 2)
Quarter: 2022Q1

REPORT INFORMATION
  Report Type: Spontaneous
  Country: IN (occurrence: IN)
  Receive Date: 20220110
  Receipt Date: 20220116
  Transmission Date: 20220424
  Serious: Yes (Hospitalization, Other)
  Sender: FDA-Public Use
  Company Number: IN-SUN PHARMACEUTICAL INDUSTRIES LTD-2021R1-307969

PATIENT
  Age: 13 Year
  Sex: Female

DRUGS (3)
  1. CIPROFLOXACIN [Suspect]
     Active Substance: CIPROFLOXACIN
     Indication: Renal abscess
     Dosage: UNK
     Route: 065
  2. CYCLOSPORINE [Suspect]
     Active Substance: CYCLOSPORINE
     Indication: Bone marrow transplant
     Dosage: ON WEANING DOSES
     Route: 065
  3. LINEZOLID [Concomitant]
     Active Substance: LINEZOLID
     Indication: Renal abscess
     Dosage: UNK
     Route: 065

REACTIONS (5)
  - Toxic leukoencephalopathy [Recovering/Resolving]
  - Labelled drug-drug interaction issue [Unknown]
  - Hemiparesis [Recovered/Resolved]
  - Acute kidney injury [Recovering/Resolving]
  - Multiple organ dysfunction syndrome [Recovering/Resolving]
